FAERS Safety Report 20645030 (Version 1)
Quarter: 2022Q1

REPORT INFORMATION
  Report Type: Spontaneous
  Country: BR (occurrence: BR)
  Receive Date: 20220328
  Receipt Date: 20220328
  Transmission Date: 20220424
  Serious: Yes (Disabling, Other)
  Sender: FDA-Public Use
  Company Number: BR-NAPPMUNDI-GBR-2022-0096381

PATIENT
  Age: 51 Year
  Sex: Male

DRUGS (1)
  1. MORPHINE SULFATE [Suspect]
     Active Substance: MORPHINE SULFATE
     Indication: Product used for unknown indication
     Dosage: 3 TABLET, UNK (STRENGTH 10MG, SELF-INJECTED)
     Route: 013

REACTIONS (11)
  - Drug abuse [Recovered/Resolved with Sequelae]
  - Compartment syndrome [Recovered/Resolved with Sequelae]
  - Peripheral ischaemia [Recovered/Resolved with Sequelae]
  - Dry gangrene [Recovered/Resolved with Sequelae]
  - Rhabdomyolysis [Recovered/Resolved]
  - Renal failure [Recovered/Resolved]
  - Drug withdrawal syndrome [Unknown]
  - Pain [Recovered/Resolved]
  - Cyanosis [Recovered/Resolved with Sequelae]
  - Peripheral coldness [Recovered/Resolved with Sequelae]
  - Oedema peripheral [Recovered/Resolved]
